FAERS Safety Report 21450616 (Version 2)
Quarter: 2022Q4

REPORT INFORMATION
  Report Type: Spontaneous
  Country: RU (occurrence: RU)
  Receive Date: 20221013
  Receipt Date: 20221101
  Transmission Date: 20230113
  Serious: Yes (Death, Hospitalization)
  Sender: FDA-Public Use
  Company Number: RU-drreddys-LIT/RUS/22/0155707

PATIENT
  Age: 41 Year

DRUGS (13)
  1. CLOPIDOGREL [Suspect]
     Active Substance: CLOPIDOGREL BISULFATE
     Indication: Product used for unknown indication
  2. ENALAPRIL MALEATE [Suspect]
     Active Substance: ENALAPRIL MALEATE
     Indication: Product used for unknown indication
  3. ESOMEPRAZOLE [Suspect]
     Active Substance: ESOMEPRAZOLE
     Indication: Product used for unknown indication
     Route: 048
  4. ATORVASTATIN [Suspect]
     Active Substance: ATORVASTATIN
     Indication: Product used for unknown indication
  5. BROMISOVAL\PHENOBARBITAL SODIUM [Concomitant]
     Active Substance: BROMISOVAL\PHENOBARBITAL SODIUM
     Indication: Product used for unknown indication
  6. ASPIRIN [Concomitant]
     Active Substance: ASPIRIN
     Indication: Product used for unknown indication
  7. CLOPIDOGREL [Concomitant]
     Active Substance: CLOPIDOGREL BISULFATE
     Indication: Product used for unknown indication
  8. NITROGLYCERIN [Concomitant]
     Active Substance: NITROGLYCERIN
     Indication: Product used for unknown indication
  9. HEPARIN [Concomitant]
     Active Substance: HEPARIN SODIUM
     Indication: Product used for unknown indication
  10. NALAPRIL [Concomitant]
     Indication: Product used for unknown indication
  11. BISOPROLOL [Concomitant]
     Active Substance: BISOPROLOL
     Indication: Product used for unknown indication
  12. ATORVASTATIN [Concomitant]
     Active Substance: ATORVASTATIN
     Indication: Product used for unknown indication
  13. AMINOCAPROIC ACID [Concomitant]
     Active Substance: AMINOCAPROIC ACID
     Indication: Product used for unknown indication
     Route: 048

REACTIONS (16)
  - General physical health deterioration [Fatal]
  - Dyspnoea [Fatal]
  - Asthenia [Fatal]
  - Gait disturbance [Fatal]
  - Dysarthria [Fatal]
  - Pallor [Fatal]
  - Cold sweat [Fatal]
  - Heart rate increased [Fatal]
  - Venous thrombosis [Fatal]
  - Leukocytosis [Fatal]
  - Lacunar infarction [Fatal]
  - Therapy non-responder [Fatal]
  - Hypotension [Fatal]
  - Headache [Fatal]
  - Duodenal ulcer [Fatal]
  - Dizziness [Fatal]

NARRATIVE: CASE EVENT DATE: 20170731
